FAERS Safety Report 19066745 (Version 2)
Quarter: 2021Q2

REPORT INFORMATION
  Report Type: Spontaneous
  Country: US (occurrence: US)
  Receive Date: 20210329
  Receipt Date: 20210523
  Transmission Date: 20210717
  Serious: Yes (Hospitalization)
  Sender: FDA-Public Use
  Company Number: US-FRESENIUS MEDICAL CARE RENAL THERAPIES GROUP-FMC-2103-000358

PATIENT
  Age: 36 Year
  Sex: Female
  Weight: 80 kg

DRUGS (13)
  1. VALIUM [Concomitant]
     Active Substance: DIAZEPAM
  2. VELPHORO [Concomitant]
     Active Substance: SUCROFERRIC OXYHYDROXIDE
  3. CARVEDILOL. [Concomitant]
     Active Substance: CARVEDILOL
  4. CINACALCET. [Concomitant]
     Active Substance: CINACALCET
  5. COLACE [Concomitant]
     Active Substance: DOCUSATE SODIUM
  6. LEVEMIR [Concomitant]
     Active Substance: INSULIN DETEMIR
  7. DELFLEX WITH DEXTROSE 2.5% LOW MAGNESIUM LOW CALCIUM [Suspect]
     Active Substance: CALCIUM CHLORIDE\DEXTROSE\MAGNESIUM CHLORIDE\SODIUM CHLORIDE\SODIUM LACTATE
     Indication: END STAGE RENAL DISEASE
     Dosage: FILLS = 4; FILL VOLUME = 3,000 ML; LAST FILL VOLUME = 2,000ML; TOTAL VOLUME = 11,000 ML; TOTAL SLEEP
     Route: 033
     Dates: start: 20201230
  8. NORCO [Concomitant]
     Active Substance: ACETAMINOPHEN\HYDROCODONE BITARTRATE
  9. NOVOLIN R [Concomitant]
     Active Substance: INSULIN HUMAN
  10. DELFLEX WITH DEXTROSE 4.25% LOW MAGNESIUM LOW CALCIUM [Suspect]
     Active Substance: CALCIUM CHLORIDE\DEXTROSE\MAGNESIUM CHLORIDE\SODIUM CHLORIDE\SODIUM LACTATE
     Indication: END STAGE RENAL DISEASE
     Dosage: FILLS = 4; FILL VOLUME = 3,000 ML; LAST FILL VOLUME = 2,000ML; TOTAL VOLUME = 11,000 ML; TOTAL SLEEP
     Route: 033
     Dates: start: 20201230
  11. CALCITRIOL. [Concomitant]
     Active Substance: CALCITRIOL
  12. GABAPENTIN. [Concomitant]
     Active Substance: GABAPENTIN
  13. LOKELMA [Concomitant]
     Active Substance: SODIUM ZIRCONIUM CYCLOSILICATE

REACTIONS (3)
  - Treatment noncompliance [Unknown]
  - Abdominal pain [Recovering/Resolving]
  - Pain [Unknown]
